FAERS Safety Report 25722813 (Version 1)
Quarter: 2025Q3

REPORT INFORMATION
  Report Type: Spontaneous
  Country: CA (occurrence: CA)
  Receive Date: 20250825
  Receipt Date: 20250825
  Transmission Date: 20251020
  Serious: Yes (Death, Other)
  Sender: BRISTOL-MYERS SQUIBB COMPANY
  Company Number: CA-BRISTOL-MYERS SQUIBB COMPANY-2025-117484

PATIENT
  Age: 44 Year
  Sex: Female
  Weight: 97 kg

DRUGS (187)
  1. ORENCIA [Suspect]
     Active Substance: ABATACEPT
     Indication: Rheumatoid arthritis
  2. ORENCIA [Suspect]
     Active Substance: ABATACEPT
  3. ORENCIA [Suspect]
     Active Substance: ABATACEPT
  4. ORENCIA [Suspect]
     Active Substance: ABATACEPT
     Indication: Rheumatoid arthritis
     Route: 058
  5. ORENCIA [Suspect]
     Active Substance: ABATACEPT
     Indication: Rheumatoid arthritis
     Route: 042
  6. PERCOCET [Concomitant]
     Active Substance: ACETAMINOPHEN\OXYCODONE HYDROCHLORIDE
     Indication: Rheumatoid arthritis
  7. PERCOCET [Concomitant]
     Active Substance: ACETAMINOPHEN\OXYCODONE HYDROCHLORIDE
  8. ACETAMINOPHEN [Concomitant]
     Active Substance: ACETAMINOPHEN
     Indication: Rheumatoid arthritis
  9. ACETAMINOPHEN [Concomitant]
     Active Substance: ACETAMINOPHEN
     Indication: Crohn^s disease
  10. ACETAMINOPHEN [Concomitant]
     Active Substance: ACETAMINOPHEN
  11. ACETAMINOPHEN [Concomitant]
     Active Substance: ACETAMINOPHEN
  12. ACETAMINOPHEN [Concomitant]
     Active Substance: ACETAMINOPHEN
  13. ACETAMINOPHEN [Concomitant]
     Active Substance: ACETAMINOPHEN
     Route: 048
  14. ACTEMRA [Concomitant]
     Active Substance: TOCILIZUMAB
     Indication: Rheumatoid arthritis
  15. ACTEMRA [Concomitant]
     Active Substance: TOCILIZUMAB
     Route: 058
  16. ACTEMRA [Concomitant]
     Active Substance: TOCILIZUMAB
  17. ACTEMRA [Concomitant]
     Active Substance: TOCILIZUMAB
  18. ACTEMRA [Concomitant]
     Active Substance: TOCILIZUMAB
  19. ACTEMRA [Concomitant]
     Active Substance: TOCILIZUMAB
  20. ACTEMRA [Concomitant]
     Active Substance: TOCILIZUMAB
  21. ADALIMUMAB [Concomitant]
     Active Substance: ADALIMUMAB
     Indication: Rheumatoid arthritis
  22. ADALIMUMAB [Concomitant]
     Active Substance: ADALIMUMAB
     Indication: Psoriatic arthropathy
  23. ADALIMUMAB [Concomitant]
     Active Substance: ADALIMUMAB
     Route: 058
  24. ADVIL [Concomitant]
     Active Substance: IBUPROFEN
     Indication: Product used for unknown indication
  25. ALENDRONIC ACID [Concomitant]
     Active Substance: ALENDRONIC ACID
     Indication: Rheumatoid arthritis
  26. ALENDRONIC ACID [Concomitant]
     Active Substance: ALENDRONIC ACID
  27. ALENDRONIC ACID [Concomitant]
     Active Substance: ALENDRONIC ACID
  28. ALENDRONIC ACID [Concomitant]
     Active Substance: ALENDRONIC ACID
  29. PANTOPRAZOLE SODIUM ANHYDROUS [Concomitant]
     Active Substance: PANTOPRAZOLE SODIUM ANHYDROUS
     Indication: Rheumatoid arthritis
  30. PANTOPRAZOLE SODIUM ANHYDROUS [Concomitant]
     Active Substance: PANTOPRAZOLE SODIUM ANHYDROUS
  31. PREDNISONE [Concomitant]
     Active Substance: PREDNISONE
     Indication: Rheumatoid arthritis
  32. PREDNISONE [Concomitant]
     Active Substance: PREDNISONE
     Indication: Condition aggravated
  33. ARAVA [Concomitant]
     Active Substance: LEFLUNOMIDE
     Indication: Rheumatoid arthritis
     Route: 005
  34. ARAVA [Concomitant]
     Active Substance: LEFLUNOMIDE
  35. ARAVA [Concomitant]
     Active Substance: LEFLUNOMIDE
  36. ARAVA [Concomitant]
     Active Substance: LEFLUNOMIDE
  37. ARAVA [Concomitant]
     Active Substance: LEFLUNOMIDE
  38. ARAVA [Concomitant]
     Active Substance: LEFLUNOMIDE
  39. ARAVA [Concomitant]
     Active Substance: LEFLUNOMIDE
  40. ASACOL [Concomitant]
     Active Substance: MESALAMINE
     Indication: Crohn^s disease
  41. ATIVAN [Concomitant]
     Active Substance: LORAZEPAM
     Indication: Rheumatoid arthritis
  42. AZATHIOPRINE SODIUM [Concomitant]
     Active Substance: AZATHIOPRINE SODIUM
     Indication: Rheumatoid arthritis
  43. CAFFEINE [Concomitant]
     Active Substance: CAFFEINE
     Indication: Rheumatoid arthritis
  44. CAFFEINE CITRATE [Concomitant]
     Active Substance: CAFFEINE CITRATE
     Indication: Product used for unknown indication
  45. CALCIUM CARBONATE [Concomitant]
     Active Substance: CALCIUM CARBONATE
     Indication: Product used for unknown indication
  46. CELECOXIB [Concomitant]
     Active Substance: CELECOXIB
     Indication: Rheumatoid arthritis
  47. CELECOXIB [Concomitant]
     Active Substance: CELECOXIB
  48. CELECOXIB [Concomitant]
     Active Substance: CELECOXIB
  49. CELECOXIB [Concomitant]
     Active Substance: CELECOXIB
  50. CELECOXIB [Concomitant]
     Active Substance: CELECOXIB
  51. CELECOXIB [Concomitant]
     Active Substance: CELECOXIB
  52. CETIRIZINE [Concomitant]
     Active Substance: CETIRIZINE HYDROCHLORIDE
     Indication: Rheumatoid arthritis
  53. CETIRIZINE [Concomitant]
     Active Substance: CETIRIZINE HYDROCHLORIDE
  54. CETIRIZINE [Concomitant]
     Active Substance: CETIRIZINE HYDROCHLORIDE
  55. CHLORAPREP [Concomitant]
     Active Substance: CHLORHEXIDINE GLUCONATE\ISOPROPYL ALCOHOL
     Indication: Rheumatoid arthritis
  56. CHLORAPREP [Concomitant]
     Active Substance: CHLORHEXIDINE GLUCONATE\ISOPROPYL ALCOHOL
  57. CHLORHEXIDINE [Concomitant]
     Active Substance: CHLORHEXIDINE
     Indication: Rheumatoid arthritis
     Route: 048
  58. CHLORHEXIDINE [Concomitant]
     Active Substance: CHLORHEXIDINE
     Route: 058
  59. CHLORHEXIDINE [Concomitant]
     Active Substance: CHLORHEXIDINE
  60. CHLORHEXIDINE [Concomitant]
     Active Substance: CHLORHEXIDINE
  61. CHLORHEXIDINE [Concomitant]
     Active Substance: CHLORHEXIDINE
  62. CHOLECALCIFEROL [Concomitant]
     Active Substance: CHOLECALCIFEROL
     Indication: Rheumatoid arthritis
  63. CHOLECALCIFEROL [Concomitant]
     Active Substance: CHOLECALCIFEROL
  64. CIMZIA [Concomitant]
     Active Substance: CERTOLIZUMAB PEGOL
     Indication: Rheumatoid arthritis
  65. CIMZIA [Concomitant]
     Active Substance: CERTOLIZUMAB PEGOL
     Indication: Psoriasis
  66. CODEINE [Concomitant]
     Active Substance: CODEINE
     Indication: Rheumatoid arthritis
  67. COSENTYX [Concomitant]
     Active Substance: SECUKINUMAB
     Indication: Rheumatoid arthritis
  68. COSENTYX [Concomitant]
     Active Substance: SECUKINUMAB
     Indication: Psoriatic arthropathy
  69. DESOXIMETASONE [Concomitant]
     Active Substance: DESOXIMETASONE
     Indication: Rheumatoid arthritis
  70. DESOXIMETASONE [Concomitant]
     Active Substance: DESOXIMETASONE
  71. DESOXIMETASONE [Concomitant]
     Active Substance: DESOXIMETASONE
  72. DESOXIMETASONE [Concomitant]
     Active Substance: DESOXIMETASONE
  73. DESOXIMETASONE [Concomitant]
     Active Substance: DESOXIMETASONE
  74. DICLOFENAC POTASSIUM [Concomitant]
     Active Substance: DICLOFENAC POTASSIUM
     Indication: Rheumatoid arthritis
  75. DICLOFENAC SODIUM [Concomitant]
     Active Substance: DICLOFENAC SODIUM
     Indication: Rheumatoid arthritis
  76. DICLOFENAC SODIUM [Concomitant]
     Active Substance: DICLOFENAC SODIUM
  77. DICLOFENAC SODIUM [Concomitant]
     Active Substance: DICLOFENAC SODIUM
  78. DICLOFENAC SODIUM [Concomitant]
     Active Substance: DICLOFENAC SODIUM
     Route: 058
  79. DICLOFENAC SODIUM [Concomitant]
     Active Substance: DICLOFENAC SODIUM
  80. DIPHENHYDRAMINE HYDROCHLORIDE [Concomitant]
     Active Substance: DIPHENHYDRAMINE HYDROCHLORIDE
     Indication: Product used for unknown indication
  81. DOXYCYCLINE HYCLATE [Concomitant]
     Active Substance: DOXYCYCLINE HYCLATE
     Indication: Rheumatoid arthritis
     Route: 005
  82. DOXYCYCLINE HYCLATE [Concomitant]
     Active Substance: DOXYCYCLINE HYCLATE
  83. ENBREL [Concomitant]
     Active Substance: ETANERCEPT
     Indication: Rheumatoid arthritis
  84. ENBREL [Concomitant]
     Active Substance: ETANERCEPT
  85. ENBREL [Concomitant]
     Active Substance: ETANERCEPT
  86. ENBREL [Concomitant]
     Active Substance: ETANERCEPT
  87. ENBREL [Concomitant]
     Active Substance: ETANERCEPT
  88. ENBREL [Concomitant]
     Active Substance: ETANERCEPT
  89. ENBREL [Concomitant]
     Active Substance: ETANERCEPT
  90. ERELZI [Concomitant]
     Active Substance: ETANERCEPT-SZZS
     Indication: Rheumatoid arthritis
  91. ERGOCALCIFEROL [Concomitant]
     Active Substance: ERGOCALCIFEROL
     Indication: Rheumatoid arthritis
  92. ERYTHROMYCIN [Concomitant]
     Active Substance: ERYTHROMYCIN
     Indication: Product used for unknown indication
  93. FLUOROMETHOLONE [Concomitant]
     Active Substance: FLUOROMETHOLONE
     Indication: Product used for unknown indication
  94. FOLIC ACID [Concomitant]
     Active Substance: FOLIC ACID
     Indication: Rheumatoid arthritis
  95. FOLIC ACID [Concomitant]
     Active Substance: FOLIC ACID
  96. FOLIC ACID [Concomitant]
     Active Substance: FOLIC ACID
  97. FOLIC ACID [Concomitant]
     Active Substance: FOLIC ACID
  98. FOLIC ACID [Concomitant]
     Active Substance: FOLIC ACID
  99. FOLIC ACID [Concomitant]
     Active Substance: FOLIC ACID
  100. FOLIC ACID [Concomitant]
     Active Substance: FOLIC ACID
  101. FOLIC ACID [Concomitant]
     Active Substance: FOLIC ACID
  102. FOLIC ACID [Concomitant]
     Active Substance: FOLIC ACID
  103. FOSAMAX [Concomitant]
     Active Substance: ALENDRONATE SODIUM
     Indication: Rheumatoid arthritis
  104. FOSAMAX [Concomitant]
     Active Substance: ALENDRONATE SODIUM
  105. FOSAMAX [Concomitant]
     Active Substance: ALENDRONATE SODIUM
  106. FOSAPREPITANT [Concomitant]
     Active Substance: FOSAPREPITANT
     Indication: Rheumatoid arthritis
  107. GLUCOSAMINE [Concomitant]
     Active Substance: GLUCOSAMINE
     Indication: Rheumatoid arthritis
  108. HUMIRA [Concomitant]
     Active Substance: ADALIMUMAB
     Indication: Rheumatoid arthritis
  109. HUMIRA [Concomitant]
     Active Substance: ADALIMUMAB
     Route: 058
  110. HUMIRA [Concomitant]
     Active Substance: ADALIMUMAB
  111. HUMIRA [Concomitant]
     Active Substance: ADALIMUMAB
  112. HYALURONIDASE [Concomitant]
     Active Substance: HYALURONIDASE
     Indication: Product used for unknown indication
  113. INFLIXIMAB [Concomitant]
     Active Substance: INFLIXIMAB
     Indication: Rheumatoid arthritis
  114. ISOPROPYL ALCOHOL [Concomitant]
     Active Substance: ISOPROPYL ALCOHOL
     Indication: Product used for unknown indication
     Route: 061
  115. LANSOPRAZOLE [Concomitant]
     Active Substance: LANSOPRAZOLE
     Indication: Rheumatoid arthritis
  116. LEFLUNOMIDE [Concomitant]
     Active Substance: LEFLUNOMIDE
     Indication: Rheumatoid arthritis
  117. LISINOPRIL [Concomitant]
     Active Substance: LISINOPRIL
     Indication: Product used for unknown indication
  118. CLIOQUINOL\FLUMETHASONE [Concomitant]
     Active Substance: CLIOQUINOL\FLUMETHASONE
     Indication: Product used for unknown indication
  119. LORAZEPAM [Concomitant]
     Active Substance: LORAZEPAM
     Indication: Rheumatoid arthritis
  120. MAGNESIUM [Concomitant]
     Active Substance: MAGNESIUM
     Indication: Product used for unknown indication
  121. MELOXICAM [Concomitant]
     Active Substance: MELOXICAM
     Indication: Product used for unknown indication
  122. MESALAMINE [Concomitant]
     Active Substance: MESALAMINE
     Indication: Crohn^s disease
  123. METHOTREXATE [Concomitant]
     Active Substance: METHOTREXATE
     Indication: Rheumatoid arthritis
  124. METHOTREXATE [Concomitant]
     Active Substance: METHOTREXATE
  125. METHOTREXATE [Concomitant]
     Active Substance: METHOTREXATE
  126. METHOTREXATE [Concomitant]
     Active Substance: METHOTREXATE
  127. METHOTREXATE [Concomitant]
     Active Substance: METHOTREXATE
  128. METHOTREXATE [Concomitant]
     Active Substance: METHOTREXATE
  129. METHOTREXATE [Concomitant]
     Active Substance: METHOTREXATE
  130. MORPHINE [Concomitant]
     Active Substance: MORPHINE
     Indication: Rheumatoid arthritis
  131. MYCOPHENOLATE MOFETIL [Concomitant]
     Active Substance: MYCOPHENOLATE MOFETIL
     Indication: Rheumatoid arthritis
  132. NAPROXEN SODIUM [Concomitant]
     Active Substance: NAPROXEN SODIUM
     Indication: Rheumatoid arthritis
  133. NAPROXEN SODIUM [Concomitant]
     Active Substance: NAPROXEN SODIUM
  134. OTEZLA [Concomitant]
     Active Substance: APREMILAST
     Indication: Rheumatoid arthritis
  135. OTEZLA [Concomitant]
     Active Substance: APREMILAST
  136. OTEZLA [Concomitant]
     Active Substance: APREMILAST
  137. PHTHALYLSULFATHIAZOLE [Concomitant]
     Active Substance: PHTHALYLSULFATHIAZOLE
     Indication: Rheumatoid arthritis
  138. PHTHALYLSULFATHIAZOLE [Concomitant]
     Active Substance: PHTHALYLSULFATHIAZOLE
  139. PHTHALYLSULFATHIAZOLE [Concomitant]
     Active Substance: PHTHALYLSULFATHIAZOLE
  140. PLAQUENIL [Concomitant]
     Active Substance: HYDROXYCHLOROQUINE SULFATE
     Indication: Rheumatoid arthritis
  141. PLAQUENIL [Concomitant]
     Active Substance: HYDROXYCHLOROQUINE SULFATE
  142. PREDNISONE [Concomitant]
     Active Substance: PREDNISONE
     Indication: Rheumatoid arthritis
  143. PREDNISONE [Concomitant]
     Active Substance: PREDNISONE
     Indication: Condition aggravated
  144. PREDNISONE [Concomitant]
     Active Substance: PREDNISONE
     Indication: Arthralgia
  145. PREDNISONE [Concomitant]
     Active Substance: PREDNISONE
  146. PREGABALIN [Concomitant]
     Active Substance: PREGABALIN
     Indication: Product used for unknown indication
     Route: 048
  147. PREGABALIN [Concomitant]
     Active Substance: PREGABALIN
  148. PREVACID [Concomitant]
     Active Substance: LANSOPRAZOLE
     Indication: Product used for unknown indication
  149. PSEUDOEPHEDRINE HYDROCHLORIDE [Concomitant]
     Active Substance: PSEUDOEPHEDRINE HYDROCHLORIDE
     Indication: Rheumatoid arthritis
  150. PSEUDOEPHEDRINE HYDROCHLORIDE [Concomitant]
     Active Substance: PSEUDOEPHEDRINE HYDROCHLORIDE
  151. PSEUDOEPHEDRINE HYDROCHLORIDE [Concomitant]
     Active Substance: PSEUDOEPHEDRINE HYDROCHLORIDE
  152. PSEUDOEPHEDRINE HYDROCHLORIDE [Concomitant]
     Active Substance: PSEUDOEPHEDRINE HYDROCHLORIDE
  153. QUETIAPINE FUMARATE [Concomitant]
     Active Substance: QUETIAPINE FUMARATE
     Indication: Product used for unknown indication
  154. RAMIPRIL [Concomitant]
     Active Substance: RAMIPRIL
     Indication: Product used for unknown indication
  155. CETIRIZINE HYDROCHLORIDE [Concomitant]
     Active Substance: CETIRIZINE HYDROCHLORIDE
     Indication: Rheumatoid arthritis
  156. CETIRIZINE HYDROCHLORIDE [Concomitant]
     Active Substance: CETIRIZINE HYDROCHLORIDE
  157. CETIRIZINE HYDROCHLORIDE [Concomitant]
     Active Substance: CETIRIZINE HYDROCHLORIDE
  158. CETIRIZINE HYDROCHLORIDE [Concomitant]
     Active Substance: CETIRIZINE HYDROCHLORIDE
  159. RITUXIMAB [Concomitant]
     Active Substance: RITUXIMAB
     Indication: Rheumatoid arthritis
  160. RITUXIMAB [Concomitant]
     Active Substance: RITUXIMAB
  161. SULFASALAZINE [Concomitant]
     Active Substance: SULFASALAZINE
     Indication: Product used for unknown indication
  162. SULFASALAZINE [Concomitant]
     Active Substance: SULFASALAZINE
  163. ALBUTEROL [Concomitant]
     Active Substance: ALBUTEROL
     Indication: Product used for unknown indication
  164. SIMPONI [Concomitant]
     Active Substance: GOLIMUMAB
     Indication: Rheumatoid arthritis
  165. SIMPONI [Concomitant]
     Active Substance: GOLIMUMAB
     Route: 058
  166. AMINOSALICYLATE SODIUM [Concomitant]
     Active Substance: AMINOSALICYLATE SODIUM
     Indication: Product used for unknown indication
  167. STELARA [Concomitant]
     Active Substance: USTEKINUMAB
     Indication: Product used for unknown indication
     Route: 058
  168. SULFASALAZINE [Concomitant]
     Active Substance: SULFASALAZINE
     Indication: Rheumatoid arthritis
  169. SULFASALAZINE [Concomitant]
     Active Substance: SULFASALAZINE
     Route: 048
  170. SULFASALAZINE [Concomitant]
     Active Substance: SULFASALAZINE
  171. SULFASALAZINE [Concomitant]
     Active Substance: SULFASALAZINE
  172. SULFASALAZINE [Concomitant]
     Active Substance: SULFASALAZINE
  173. SULFASALAZINE [Concomitant]
     Active Substance: SULFASALAZINE
  174. SULFASALAZINE [Concomitant]
     Active Substance: SULFASALAZINE
  175. SULFASALAZINE [Concomitant]
     Active Substance: SULFASALAZINE
  176. SULFASALAZINE [Concomitant]
     Active Substance: SULFASALAZINE
  177. SULFASALAZINE [Concomitant]
     Active Substance: SULFASALAZINE
  178. TOFACITINIB [Concomitant]
     Active Substance: TOFACITINIB
     Indication: Rheumatoid arthritis
  179. TUMS [Concomitant]
     Active Substance: CALCIUM CARBONATE
     Indication: Product used for unknown indication
  180. VITAMIN C [Concomitant]
     Active Substance: ASCORBIC ACID
     Indication: Product used for unknown indication
  181. XELJANZ [Concomitant]
     Active Substance: TOFACITINIB CITRATE
     Indication: Rheumatoid arthritis
  182. XELJANZ [Concomitant]
     Active Substance: TOFACITINIB CITRATE
  183. ZESTRIL [Concomitant]
     Active Substance: LISINOPRIL
     Indication: Product used for unknown indication
  184. ZESTRIL [Concomitant]
     Active Substance: LISINOPRIL
  185. ZESTRIL [Concomitant]
     Active Substance: LISINOPRIL
  186. FLUMETHASONE\SALICYLIC ACID [Concomitant]
     Active Substance: FLUMETHASONE\SALICYLIC ACID
     Indication: Rheumatoid arthritis
  187. FOSAPREPITANT DIMEGLUMINE [Concomitant]
     Active Substance: FOSAPREPITANT DIMEGLUMINE
     Indication: Product used for unknown indication

REACTIONS (1)
  - Death [Fatal]
